FAERS Safety Report 9611484 (Version 1)
Quarter: 2013Q4

REPORT INFORMATION
  Report Type: Spontaneous
  Country: US (occurrence: US)
  Receive Date: 20131010
  Receipt Date: 20131010
  Transmission Date: 20140711
  Serious: No
  Sender: FDA-Public Use
  Company Number: US-009507513-1310USA000853

PATIENT
  Sex: 0

DRUGS (2)
  1. NEXPLANON [Suspect]
     Dosage: 1 ROD FOR THREE YEARS
     Route: 059
     Dates: start: 20130920, end: 20130920
  2. NEXPLANON [Suspect]
     Dosage: 1 ROD FOR THREE YEARS
     Route: 059
     Dates: start: 20130920

REACTIONS (3)
  - Device deployment issue [Unknown]
  - Device difficult to use [Unknown]
  - No adverse event [Unknown]
